FAERS Safety Report 13647487 (Version 2)
Quarter: 2017Q4

REPORT INFORMATION
  Report Type: Spontaneous
  Country: US (occurrence: US)
  Receive Date: 20170613
  Receipt Date: 20171116
  Transmission Date: 20180320
  Serious: No
  Sender: FDA-Public Use
  Company Number: US-PFIZER INC-2017249952

PATIENT
  Age: 14 Year
  Sex: Male
  Weight: 54.88 kg

DRUGS (3)
  1. BENEFIX [Suspect]
     Active Substance: COAGULATION FACTOR IX RECOMBINANT HUMAN\ISOPROPYL ALCOHOL
     Dosage: UNK (5500 IU +/- 5% # OF DOSES: 4/ 5500 UNITS (+/- 5%) = 100 U/KG DOSING DAILY FOR BLEEDS)
  2. BENEFIX [Suspect]
     Active Substance: COAGULATION FACTOR IX RECOMBINANT HUMAN\ISOPROPYL ALCOHOL
     Dosage: UNK, (5660 UNITS (+5%) = 100 UNITS/KG DAILY)
  3. BENEFIX [Suspect]
     Active Substance: COAGULATION FACTOR IX RECOMBINANT HUMAN\ISOPROPYL ALCOHOL
     Indication: FACTOR IX DEFICIENCY
     Dosage: UNK, (610 IU +5% # OF DOSES: 3)

REACTIONS (1)
  - Weight increased [Unknown]
